FAERS Safety Report 18164381 (Version 4)
Quarter: 2021Q1

REPORT INFORMATION
  Report Type: Spontaneous
  Country: US (occurrence: US)
  Receive Date: 20200818
  Receipt Date: 20210128
  Transmission Date: 20210419
  Serious: Yes (Other)
  Sender: FDA-Public Use
  Company Number: US-PFIZER INC-2020061049

PATIENT
  Age: 85 Year
  Sex: Female

DRUGS (3)
  1. LIPITOR [Concomitant]
     Active Substance: ATORVASTATIN CALCIUM
  2. PREMARIN [Suspect]
     Active Substance: ESTROGENS, CONJUGATED
     Dosage: UNK, AS NEEDED (SHE DOESN^T USE THE PRODUCT REGULARLY, ONLY AS NEEDED)
  3. XANAX [Concomitant]
     Active Substance: ALPRAZOLAM

REACTIONS (12)
  - Hypoacusis [Unknown]
  - Nocturia [Unknown]
  - Blood pressure increased [Unknown]
  - Off label use [Unknown]
  - Product use issue [Unknown]
  - Glaucoma [Unknown]
  - Choking sensation [Unknown]
  - Irritable bowel syndrome [Unknown]
  - Neuritis [Unknown]
  - Cataract [Recovered/Resolved]
  - Urinary tract infection [Unknown]
  - Adrenomegaly [Unknown]
